FAERS Safety Report 7364861-9 (Version None)
Quarter: 2011Q1

REPORT INFORMATION
  Report Type: 
  Country: None (occurrence: None)
  Receive Date: 20110321
  Receipt Date: 20110207
  Transmission Date: 20110831
  Serious: Yes (Other)
  Sender: FDA-Public Use
  Company Number: US-BAXTER-2011BH003135

PATIENT
  Sex: Female

DRUGS (7)
  1. HEPARIN SODIUM INJECTION [Suspect]
     Indication: PRODUCT USED FOR UNKNOWN INDICATION
     Route: 065
     Dates: start: 20071001, end: 20071031
  2. HEPARIN SODIUM INJECTION [Suspect]
     Route: 065
     Dates: start: 20071001, end: 20071001
  3. HEPARIN SODIUM INJECTION [Suspect]
     Route: 065
     Dates: start: 20071001, end: 20071001
  4. HEPARIN SODIUM 5,000 UNITS IN DEXTROSE 5% [Suspect]
     Indication: PRODUCT USED FOR UNKNOWN INDICATION
     Route: 042
     Dates: start: 20071001, end: 20071001
  5. HEPARIN SODIUM INJECTION [Suspect]
     Route: 040
     Dates: start: 20071001, end: 20071001
  6. HEPARIN SODIUM INJECTION [Suspect]
     Route: 065
     Dates: start: 20071001, end: 20071001
  7. HEPARIN SODIUM 5,000 UNITS IN DEXTROSE 5% [Suspect]
     Route: 042
     Dates: start: 20071001, end: 20071001

REACTIONS (7)
  - HEPARIN-INDUCED THROMBOCYTOPENIA [None]
  - GRAFT THROMBOSIS [None]
  - THROMBOSIS [None]
  - CERVICAL VERTEBRAL FRACTURE [None]
  - SKULL FRACTURE [None]
  - CYANOSIS [None]
  - NECROSIS [None]
